FAERS Safety Report 9212586 (Version 1)
Quarter: 2013Q2

REPORT INFORMATION
  Report Type: Spontaneous
  Country: US (occurrence: US)
  Receive Date: 20130405
  Receipt Date: 20130405
  Transmission Date: 20140414
  Serious: No
  Sender: FDA-Public Use
  Company Number: US-BIOGENIDEC-2013BI028215

PATIENT
  Sex: Female

DRUGS (1)
  1. AVONEX [Suspect]
     Indication: MULTIPLE SCLEROSIS
     Route: 030

REACTIONS (12)
  - Injection site haemorrhage [Unknown]
  - Gait disturbance [Unknown]
  - Rhinorrhoea [Unknown]
  - Muscle spasms [Unknown]
  - Decreased appetite [Unknown]
  - Myalgia [Unknown]
  - Gastric disorder [Unknown]
  - Influenza like illness [Unknown]
  - Anxiety [Unknown]
  - Memory impairment [Unknown]
  - Weight decreased [Unknown]
  - Agoraphobia [Unknown]
